FAERS Safety Report 14459608 (Version 1)
Quarter: 2018Q1

REPORT INFORMATION
  Report Type: Spontaneous
  Country: GB (occurrence: GB)
  Receive Date: 20180130
  Receipt Date: 20180130
  Transmission Date: 20180509
  Serious: Yes (Other)
  Sender: FDA-Public Use
  Company Number: GB-ALLERGAN-1804242US

PATIENT
  Age: 31 Year
  Sex: Female

DRUGS (7)
  1. MIRABEGRON [Concomitant]
     Active Substance: MIRABEGRON
  2. MONTELUKAST [Concomitant]
     Active Substance: MONTELUKAST SODIUM
  3. FOSTAIR [Concomitant]
     Active Substance: BECLOMETHASONE\FORMOTEROL
  4. PRUCALOPRIDE [Concomitant]
     Active Substance: PRUCALOPRIDE
  5. SOLIFENACIN [Concomitant]
     Active Substance: SOLIFENACIN
  6. FEXOFENADINE [Concomitant]
     Active Substance: FEXOFENADINE\FEXOFENADINE HYDROCHLORIDE
  7. LINACLOTIDE UNK [Suspect]
     Active Substance: LINACLOTIDE
     Indication: PRODUCT USED FOR UNKNOWN INDICATION
     Dosage: 290 ?G, UNK
     Route: 048
     Dates: start: 201711, end: 201712

REACTIONS (4)
  - Abdominal pain [Recovered/Resolved]
  - Dyschezia [Recovered/Resolved]
  - Gastrooesophageal reflux disease [Recovered/Resolved]
  - Headache [Recovered/Resolved]
